FAERS Safety Report 21631524 (Version 1)
Quarter: 2022Q4

REPORT INFORMATION
  Report Type: Report from Study
  Country: US (occurrence: US)
  Receive Date: 20221123
  Receipt Date: 20221123
  Transmission Date: 20230112
  Serious: No
  Sender: FDA-Public Use
  Company Number: US-ABBVIE-22K-163-4420813-00

PATIENT
  Age: 64 Year
  Sex: Female
  Weight: 70.306 kg

DRUGS (9)
  1. HUMIRA [Suspect]
     Active Substance: ADALIMUMAB
     Indication: Crohn^s disease
     Dosage: CF
     Route: 058
     Dates: end: 202205
  2. HUMIRA [Suspect]
     Active Substance: ADALIMUMAB
     Indication: Uveitis
  3. PFIZER-BIONTECH COVID-19 VACCINE [Concomitant]
     Active Substance: TOZINAMERAN
     Indication: COVID-19 immunisation
     Dosage: TIME INTERVAL: 1 TOTAL
     Route: 030
  4. PFIZER-BIONTECH COVID-19 VACCINE [Concomitant]
     Active Substance: TOZINAMERAN
     Indication: COVID-19 immunisation
     Dosage: TIME INTERVAL: 1 TOTAL: BOOSTER DOSE
     Route: 030
  5. Simvastatin 10 MG Oral [Concomitant]
     Indication: Product used for unknown indication
     Dosage: 10 MG
     Route: 048
  6. WELLBUTRIN XL 150mg oral [Concomitant]
     Indication: Product used for unknown indication
     Dosage: 150MG
     Route: 048
  7. Omeprazole 20mg oral [Concomitant]
     Indication: Product used for unknown indication
     Dosage: 20 MG
     Route: 048
  8. Biotin 5mg [Concomitant]
     Indication: Product used for unknown indication
     Dosage: 5MG
  9. PREDNISONE [Concomitant]
     Active Substance: PREDNISONE
     Indication: Product used for unknown indication

REACTIONS (3)
  - Tooth disorder [Recovered/Resolved]
  - Gingival swelling [Recovered/Resolved]
  - Toothache [Recovered/Resolved]

NARRATIVE: CASE EVENT DATE: 20220501
